FAERS Safety Report 19923294 (Version 1)
Quarter: 2021Q4

REPORT INFORMATION
  Report Type: Spontaneous
  Country: CH (occurrence: CH)
  Receive Date: 20211005
  Receipt Date: 20211005
  Transmission Date: 20220303
  Serious: Yes (Other)
  Sender: FDA-Public Use
  Company Number: CH-MALLINCKRODT PHARMACEUTICALS-T202104439

PATIENT
  Age: 62 Year
  Sex: Male

DRUGS (4)
  1. UVADEX [Suspect]
     Active Substance: METHOXSALEN
     Indication: Cutaneous T-cell lymphoma
     Dosage: UNK, EXTRACORPOREAL
     Route: 050
     Dates: start: 202003, end: 202104
  2. UVADEX [Suspect]
     Active Substance: METHOXSALEN
     Dosage: EVERY 2 WEEKS, EXTRACORPOREAL
     Route: 050
     Dates: start: 202105
  3. HEPARIN [Concomitant]
     Active Substance: HEPARIN SODIUM
     Indication: Product used for unknown indication
     Dosage: UNK. BLOCK
     Route: 065
  4. ALTEPLASE [Concomitant]
     Active Substance: ALTEPLASE
     Indication: Device occlusion
     Dosage: UNK
     Route: 065
     Dates: start: 202107

REACTIONS (1)
  - Device related infection [Unknown]

NARRATIVE: CASE EVENT DATE: 20210401
